FAERS Safety Report 16093785 (Version 1)
Quarter: 2019Q1

REPORT INFORMATION
  Report Type: Spontaneous
  Country: PT (occurrence: PT)
  Receive Date: 20190320
  Receipt Date: 20190320
  Transmission Date: 20190418
  Serious: Yes (Other)
  Sender: FDA-Public Use
  Company Number: PT-ACCORD-114206

PATIENT
  Age: 47 Year

DRUGS (2)
  1. QUETIAPINE. [Suspect]
     Active Substance: QUETIAPINE
     Indication: INSOMNIA
     Dosage: 1 AT BEDTIME
     Route: 048
     Dates: start: 20180716
  2. TIANEPTINE/TIANEPTINE SODIUM [Concomitant]

REACTIONS (3)
  - Off label use [Unknown]
  - Drug ineffective [Unknown]
  - Insomnia [Recovered/Resolved]

NARRATIVE: CASE EVENT DATE: 20180716
